FAERS Safety Report 6291572-3 (Version None)
Quarter: 2009Q3

REPORT INFORMATION
  Report Type: 
  Country: None (occurrence: None)
  Receive Date: 20090730
  Receipt Date: 20090720
  Transmission Date: 20100115
  Serious: Yes (Life-Threatening, Other)
  Sender: FDA-Public Use
  Company Number: TW-ELI_LILLY_AND_COMPANY-TW200907004376

PATIENT
  Age: 17 Year
  Sex: Male

DRUGS (4)
  1. ZYPREXA [Suspect]
     Indication: SCHIZOPHRENIFORM DISORDER
     Dosage: 10 MG, DAILY (1/D)
     Route: 048
  2. ZYPREXA [Suspect]
     Dosage: 5 MG, UNK
     Route: 030
  3. RISPERIDONE [Concomitant]
     Indication: SCHIZOPHRENIFORM DISORDER
     Dosage: 3 MG, DAILY (1/D)
  4. CLONAZEPAM [Concomitant]
     Indication: SCHIZOPHRENIFORM DISORDER
     Dosage: 4 MG, DAILY (1/D)

REACTIONS (5)
  - ALTERED STATE OF CONSCIOUSNESS [None]
  - HYPOTENSION [None]
  - HYPOTHERMIA [None]
  - RHABDOMYOLYSIS [None]
  - SINUS BRADYCARDIA [None]
